FAERS Safety Report 23684593 (Version 1)
Quarter: 2024Q1

REPORT INFORMATION
  Report Type: Spontaneous
  Country: US (occurrence: US)
  Receive Date: 20240328
  Receipt Date: 20240328
  Transmission Date: 20240410
  Serious: No
  Sender: FDA-Public Use
  Company Number: US-INCYTE CORPORATION-2024IN002320

PATIENT

DRUGS (1)
  1. OPZELURA [Suspect]
     Active Substance: RUXOLITINIB PHOSPHATE
     Dosage: 60 GRAM, BID, 1.5%, APPLY A THIN LAYER TO AFFECTED AREA(S) TWICE DAILY AS DIRECTED.
     Route: 065
     Dates: start: 202312

REACTIONS (1)
  - Rash [Recovered/Resolved]
